FAERS Safety Report 8029021-7 (Version None)
Quarter: 2012Q1

REPORT INFORMATION
  Report Type: 
  Country: None (occurrence: None)
  Receive Date: 20120106
  Receipt Date: 20111226
  Transmission Date: 20120608
  Serious: Yes (Hospitalization, Other)
  Sender: FDA-Public Use
  Company Number: JP-BAYER-2011-123113

PATIENT
  Age: 60 Year
  Sex: Male
  Weight: 88 kg

DRUGS (9)
  1. ASPIRIN [Suspect]
     Indication: THROMBOSIS PROPHYLAXIS
     Dosage: 100 MG, QD
     Route: 048
     Dates: start: 20100726
  2. AMARYL [Concomitant]
     Indication: DIABETES MELLITUS
     Dosage: 2 MG, QD
     Route: 048
     Dates: start: 20100726
  3. POLYFUL [Concomitant]
     Indication: ENTEROCOLITIS
     Dosage: 0.6 MG, TID
     Route: 048
     Dates: start: 20111210
  4. WARFARIN SODIUM [Suspect]
     Indication: THROMBOSIS PROPHYLAXIS
     Dosage: 3 MG, QD
     Route: 048
     Dates: start: 20100726
  5. GASCON [Concomitant]
     Indication: ENTEROCOLITIS
     Dosage: 40 MG, TID
     Route: 048
     Dates: start: 20111210
  6. OMEPRAZOLE [Concomitant]
     Indication: GASTROOESOPHAGEAL REFLUX DISEASE
     Dosage: 10 MG, QD
     Route: 048
     Dates: start: 20100726
  7. NIFEDIPINE [Suspect]
     Indication: ESSENTIAL HYPERTENSION
     Dosage: UNK
     Route: 048
     Dates: start: 20110514, end: 20111223
  8. TENORMIN [Concomitant]
     Indication: HYPERTENSION
     Dosage: 50 MG, QD
     Route: 048
     Dates: start: 20110709
  9. ENALAPRIL MALEATE [Concomitant]
     Indication: HYPERTENSION
     Dosage: 2.5 MG, QD
     Route: 048
     Dates: start: 20110910

REACTIONS (1)
  - CEREBRAL HAEMORRHAGE [None]
